FAERS Safety Report 12757409 (Version 1)
Quarter: 2016Q3

REPORT INFORMATION
  Report Type: Spontaneous
  Country: US (occurrence: US)
  Receive Date: 20160919
  Receipt Date: 20160919
  Transmission Date: 20161109
  Serious: No
  Sender: FDA-Public Use
  Company Number: US-ASTRAZENECA-2016SE96356

PATIENT
  Sex: Female
  Weight: 5.4 kg

DRUGS (1)
  1. NEXIUM [Suspect]
     Active Substance: ESOMEPRAZOLE MAGNESIUM
     Indication: GASTROOESOPHAGEAL REFLUX DISEASE
     Route: 048

REACTIONS (6)
  - Incorrect dose administered [Unknown]
  - Off label use [Unknown]
  - Cough [Unknown]
  - Choking [Unknown]
  - Intentional product misuse [Unknown]
  - Dysphagia [Unknown]
